FAERS Safety Report 7948520-7 (Version None)
Quarter: 2011Q4

REPORT INFORMATION
  Report Type: 
  Country: None (occurrence: None)
  Receive Date: 20111130
  Receipt Date: 20111122
  Transmission Date: 20120403
  Serious: Yes (Other)
  Sender: FDA-Public Use
  Company Number: US-UCBSA-018283

PATIENT
  Age: 26 Year
  Sex: Male
  Weight: 108 kg

DRUGS (23)
  1. FLAGYL [Concomitant]
     Dates: start: 20100626
  2. IMODIUM [Concomitant]
  3. FOLIC ACID [Concomitant]
  4. CALCIUM + VIT D [Concomitant]
     Indication: NEPHROLITHIASIS
     Dosage: 1200-400 MG
     Route: 048
     Dates: start: 20080701
  5. CIPROFLOXACIN [Concomitant]
     Indication: CROHN'S DISEASE
     Dates: start: 20091001, end: 20091125
  6. MULTI-VITAMINS [Concomitant]
  7. CIMZIA [Suspect]
     Route: 058
     Dates: start: 20100604, end: 20100702
  8. IRON [Concomitant]
  9. ASCORBIC ACID [Concomitant]
  10. PREDNISONE [Suspect]
     Indication: CROHN'S DISEASE
     Dates: start: 20100626
  11. METHOTREXATE [Suspect]
     Indication: CROHN'S DISEASE
     Dates: start: 20100803, end: 20100824
  12. ACETAMINOPHEN [Concomitant]
  13. VITAMIN D [Concomitant]
  14. CIMZIA [Suspect]
     Indication: CROHN'S DISEASE
     Route: 058
     Dates: start: 20100723
  15. CIMZIA [Suspect]
     Route: 058
     Dates: start: 20100408, end: 20100508
  16. FLAGYL [Concomitant]
     Indication: CROHN'S DISEASE
     Dates: start: 20010101, end: 20010801
  17. CIPROFLOXACIN [Concomitant]
     Dates: start: 20100626
  18. ZYRTEC [Concomitant]
  19. CO Q [Concomitant]
     Indication: ROUTINE HEALTH MAINTENANCE
     Dosage: 10 (UNITS UNSPECIFIED)
     Dates: start: 20090901
  20. COUMADIN [Concomitant]
     Route: 048
  21. ACETAMINOPHEN [Concomitant]
     Dosage: 2 TABLETS PRN
  22. FLAGYL [Concomitant]
     Dates: start: 20091001, end: 20091101
  23. VITAMIN B-12 [Concomitant]

REACTIONS (1)
  - ABSCESS [None]
